FAERS Safety Report 20981385 (Version 2)
Quarter: 2022Q3

REPORT INFORMATION
  Report Type: Spontaneous
  Country: JP (occurrence: JP)
  Receive Date: 20220620
  Receipt Date: 20220711
  Transmission Date: 20221026
  Serious: Yes (Death, Life-Threatening, Other)
  Sender: FDA-Public Use
  Company Number: JP-CORZA MEDICAL GMBH-2022-JP-002190

PATIENT
  Age: 75 Year
  Sex: Male

DRUGS (1)
  1. TACHOSIL [Suspect]
     Active Substance: FIBRINOGEN HUMAN\THROMBIN HUMAN
     Indication: Haemostasis
     Dosage: UNK
     Route: 065

REACTIONS (8)
  - Interstitial lung disease [Fatal]
  - Haemorrhage [Unknown]
  - Pulmonary air leakage [Unknown]
  - Subcutaneous emphysema [Unknown]
  - C-reactive protein increased [Unknown]
  - Infectious pleural effusion [Unknown]
  - Pleural effusion [Unknown]
  - Pyrexia [Unknown]
